FAERS Safety Report 21027264 (Version 1)
Quarter: 2022Q2

REPORT INFORMATION
  Report Type: Spontaneous
  Country: CN (occurrence: CN)
  Receive Date: 20220630
  Receipt Date: 20220630
  Transmission Date: 20220721
  Serious: Yes (Other)
  Sender: FDA-Public Use
  Company Number: None

PATIENT
  Age: 47 Year
  Sex: Female
  Weight: 64 kg

DRUGS (3)
  1. CYCLOPHOSPHAMIDE [Suspect]
     Active Substance: CYCLOPHOSPHAMIDE
     Indication: Systemic scleroderma
     Dosage: 0.4 G, QD, (DOSAGE FORM: POWDER INJECTION), 0.9% SODIUM CHLORIDE 500 ML + CYCLOPHOSPHAMIDE 0.4 G
     Route: 041
     Dates: start: 20220604, end: 20220604
  2. CYCLOPHOSPHAMIDE [Suspect]
     Active Substance: CYCLOPHOSPHAMIDE
     Indication: Interstitial lung disease
  3. SODIUM CHLORIDE [Suspect]
     Active Substance: SODIUM CHLORIDE
     Indication: Medication dilution
     Dosage: 500 ML, QD, 0.9% SODIUM CHLORIDE 500 ML + CYCLOPHOSPHAMIDE 0.4 G
     Route: 041
     Dates: start: 20220604, end: 20220604

REACTIONS (3)
  - Headache [Recovering/Resolving]
  - Cold sweat [Recovering/Resolving]
  - Pallor [Recovering/Resolving]

NARRATIVE: CASE EVENT DATE: 20220604
